FAERS Safety Report 7628050-2 (Version None)
Quarter: 2011Q3

REPORT INFORMATION
  Report Type: 
  Country: None (occurrence: None)
  Receive Date: 20110722
  Receipt Date: 20110713
  Transmission Date: 20111222
  Serious: No
  Sender: FDA-Public Use
  Company Number: US-BIOGENIDEC-2011BI026301

PATIENT
  Age: 51 Year
  Sex: Female

DRUGS (1)
  1. TYSABRI [Suspect]
     Indication: MULTIPLE SCLEROSIS
     Route: 042
     Dates: start: 20080805

REACTIONS (6)
  - ANHEDONIA [None]
  - RESPIRATORY ARREST [None]
  - HYPERSOMNIA [None]
  - SNORING [None]
  - SLEEP DISORDER [None]
  - MUSCLE TIGHTNESS [None]
